FAERS Safety Report 6275579-8 (Version None)
Quarter: 2009Q3

REPORT INFORMATION
  Report Type: 
  Country: None (occurrence: None)
  Receive Date: 20090721
  Receipt Date: 20090713
  Transmission Date: 20100115
  Serious: Yes (Death, Life-Threatening, Hospitalization)
  Sender: FDA-Public Use
  Company Number: AU-CELGENEUS-008-21880-09031615

PATIENT
  Sex: Female
  Weight: 53.8 kg

DRUGS (15)
  1. REVLIMID [Suspect]
     Indication: MULTIPLE MYELOMA
     Route: 048
     Dates: start: 20090128, end: 20090316
  2. SOMAC [Concomitant]
     Indication: DRUG USE FOR UNKNOWN INDICATION
     Route: 048
     Dates: start: 20070101, end: 20090413
  3. OXYCONTIN [Concomitant]
     Indication: PAIN
     Route: 048
     Dates: start: 20080101, end: 20090329
  4. ENDONE [Concomitant]
     Indication: PAIN
     Route: 048
     Dates: start: 20080101, end: 20090326
  5. EFFEXOR [Concomitant]
     Indication: DEPRESSION
     Route: 048
     Dates: start: 20080701, end: 20090412
  6. TEMAZEPAM [Concomitant]
     Indication: INSOMNIA
     Route: 048
     Dates: start: 20070701, end: 20090324
  7. ZOMETA [Concomitant]
     Indication: DRUG USE FOR UNKNOWN INDICATION
     Route: 051
     Dates: start: 20070701
  8. ASPIRIN [Concomitant]
     Indication: DRUG USE FOR UNKNOWN INDICATION
     Route: 048
     Dates: start: 20081001, end: 20090128
  9. ENOXAPARIN SODIUM [Concomitant]
     Indication: PROPHYLAXIS
     Route: 058
     Dates: start: 20090129, end: 20090329
  10. BACTRIM 160/800 [Concomitant]
     Indication: INFECTION PROPHYLAXIS
     Route: 048
     Dates: start: 20090129, end: 20090409
  11. PARACETAMOL [Concomitant]
     Route: 065
     Dates: start: 20090101, end: 20090404
  12. CALTRATE [Concomitant]
     Indication: SUPPLEMENTATION THERAPY
     Route: 048
     Dates: start: 20090101, end: 20090412
  13. OSTEIN [Concomitant]
     Indication: SUPPLEMENTATION THERAPY
     Route: 048
     Dates: start: 20070719, end: 20090401
  14. CALCIUM [Concomitant]
     Indication: SUPPLEMENTATION THERAPY
     Route: 051
     Dates: start: 20090301, end: 20090301
  15. POTASSIUM CHLORIDE [Concomitant]
     Indication: SUPPLEMENTATION THERAPY
     Route: 051
     Dates: start: 20090301, end: 20090301

REACTIONS (4)
  - INFECTION [None]
  - NERVOUS SYSTEM DISORDER [None]
  - PANCREATITIS [None]
  - THROMBOTIC THROMBOCYTOPENIC PURPURA [None]
